FAERS Safety Report 16070421 (Version 1)
Quarter: 2019Q1

REPORT INFORMATION
  Report Type: Spontaneous
  Country: US (occurrence: US)
  Receive Date: 20190314
  Receipt Date: 20190314
  Transmission Date: 20190418
  Serious: Yes (Other)
  Sender: FDA-Public Use
  Company Number: US-CIPLA LTD.-2018US23764

PATIENT

DRUGS (10)
  1. RISPERIDONE. [Suspect]
     Active Substance: RISPERIDONE
     Dosage: 0.5 MILLIGRAM, BID (12 H)
     Route: 065
  2. SOMATROPIN. [Concomitant]
     Active Substance: SOMATROPIN
     Indication: PRADER-WILLI SYNDROME
     Dosage: 5 MILLIGRAM, PER DAY AT NIGHT
     Route: 058
  3. SERTRALINE [Suspect]
     Active Substance: SERTRALINE HYDROCHLORIDE
     Dosage: 150 MG, GRADUALLY TITRATED
     Route: 065
  4. SERTRALINE [Suspect]
     Active Substance: SERTRALINE HYDROCHLORIDE
     Indication: PSYCHIATRIC DECOMPENSATION
     Dosage: UNK, GRADUALLY TITRATED
     Route: 065
  5. SERTRALINE [Suspect]
     Active Substance: SERTRALINE HYDROCHLORIDE
     Dosage: 75 MILLIGRAM, DAILY
     Route: 065
  6. LITHIUM. [Suspect]
     Active Substance: LITHIUM
     Indication: AFFECTIVE DISORDER
     Dosage: 600 MILLIGRAM, BID (12 H)
     Route: 065
  7. TESTOSTERONE. [Concomitant]
     Active Substance: TESTOSTERONE
     Indication: PRADER-WILLI SYNDROME
     Dosage: 200 MG, 2 WK, EVERY OTHER WEEK
     Route: 030
  8. ARIPIPRAZOLE. [Suspect]
     Active Substance: ARIPIPRAZOLE
     Indication: PSYCHIATRIC DECOMPENSATION
     Dosage: 2 MILLIGRAM
     Route: 065
  9. SOMATROPIN. [Concomitant]
     Active Substance: SOMATROPIN
     Dosage: 0.5 MILLIGRAM, PER DAY AT NIGHT
     Route: 058
  10. RISPERIDONE. [Suspect]
     Active Substance: RISPERIDONE
     Indication: PSYCHIATRIC DECOMPENSATION
     Dosage: 0.25 MILLIGRAM
     Route: 065

REACTIONS (6)
  - Increased appetite [Recovering/Resolving]
  - Dizziness [Unknown]
  - Drug ineffective [Unknown]
  - Weight increased [Unknown]
  - Nausea [Unknown]
  - Affective disorder [Recovering/Resolving]
